FAERS Safety Report 24891201 (Version 2)
Quarter: 2025Q1

REPORT INFORMATION
  Report Type: Spontaneous
  Country: TR (occurrence: TR)
  Receive Date: 20250127
  Receipt Date: 20250131
  Transmission Date: 20250408
  Serious: Yes (Hospitalization)
  Sender: PFIZER
  Company Number: TR-MLMSERVICE-20250114-PI353953-00214-1

PATIENT
  Sex: Female
  Weight: 1.24 kg

DRUGS (6)
  1. MEROPENEM [Suspect]
     Active Substance: MEROPENEM
     Indication: Sepsis neonatal
  2. MEROPENEM [Suspect]
     Active Substance: MEROPENEM
     Indication: Necrotising enterocolitis neonatal
  3. VANCOMYCIN [Concomitant]
     Active Substance: VANCOMYCIN
     Indication: Sepsis neonatal
  4. VANCOMYCIN [Concomitant]
     Active Substance: VANCOMYCIN
     Indication: Necrotising enterocolitis neonatal
  5. FLUCONAZOLE [Concomitant]
     Active Substance: FLUCONAZOLE
     Indication: Sepsis neonatal
  6. FLUCONAZOLE [Concomitant]
     Active Substance: FLUCONAZOLE
     Indication: Necrotising enterocolitis neonatal

REACTIONS (2)
  - Neonatal cholestasis [Recovering/Resolving]
  - Off label use [Unknown]
